FAERS Safety Report 6290058-X (Version None)
Quarter: 2009Q3

REPORT INFORMATION
  Report Type: 
  Country: None (occurrence: None)
  Receive Date: 20090730
  Receipt Date: 20090522
  Transmission Date: 20100115
  Serious: No
  Sender: FDA-Public Use
  Company Number: US-BRISTOL-MYERS SQUIBB COMPANY-14396576

PATIENT
  Age: 89 Year
  Sex: Male

DRUGS (8)
  1. COUMADIN [Suspect]
     Indication: CARDIOVASCULAR DISORDER
  2. COUMADIN [Suspect]
     Indication: COAGULATION TIME
  3. TENORMIN [Concomitant]
  4. LANOXIN [Concomitant]
  5. ISOSORBIDE DINITRATE [Concomitant]
  6. LASIX [Concomitant]
  7. VASOTEC [Concomitant]
  8. ALLOPURINOL [Concomitant]

REACTIONS (1)
  - INTERNATIONAL NORMALISED RATIO DECREASED [None]
